FAERS Safety Report 5426021-8 (Version None)
Quarter: 2007Q3

REPORT INFORMATION
  Report Type: 
  Country: None (occurrence: None)
  Receive Date: 20070824
  Receipt Date: 20070824
  Transmission Date: 20080115
  Serious: Yes (Life-Threatening, Hospitalization)
  Sender: FDA-Public Use
  Company Number: None

PATIENT
  Sex: Female
  Weight: 104.7809 kg

DRUGS (4)
  1. ENBREL [Suspect]
     Indication: RHEUMATOID ARTHRITIS
     Dosage: 50MG QWK SQ
     Route: 058
     Dates: start: 20020601
  2. METHOTREXATE [Concomitant]
  3. MOBIC [Concomitant]
  4. EFFEXOR [Concomitant]

REACTIONS (1)
  - LUNG CANCER METASTATIC [None]
